FAERS Safety Report 8877670 (Version 1)
Quarter: 2012Q4

REPORT INFORMATION
  Report Type: Spontaneous
  Country: ZA (occurrence: None)
  Receive Date: 20121025
  Receipt Date: 20121025
  Transmission Date: 20130627
  Serious: Yes (Other)
  Sender: FDA-Public Use
  Company Number: ZA-1194734

PATIENT
  Age: 9 Year
  Sex: Female
  Weight: 33 kg

DRUGS (2)
  1. CIPROFLOXACIN\DEXAMETHASONE [Suspect]
     Indication: OTITIS MEDIA
     Dosage: Auricular (Otic)
     Dates: start: 20121001, end: 20121006
  2. ORELOX [Concomitant]

REACTIONS (2)
  - Device occlusion [None]
  - Medication residue [None]
